FAERS Safety Report 14642202 (Version 1)
Quarter: 2018Q1

REPORT INFORMATION
  Report Type: Spontaneous
  Country: US (occurrence: US)
  Receive Date: 20180315
  Receipt Date: 20180315
  Transmission Date: 20180509
  Serious: Yes (Other)
  Sender: FDA-Public Use
  Company Number: None

PATIENT
  Age: 29 Year
  Sex: Female
  Weight: 33 kg

DRUGS (6)
  1. LORAZEPAM 1 MG [Concomitant]
     Active Substance: LORAZEPAM
  2. SODIUM CHLORIDE 0.9% - 500 ML [Concomitant]
  3. PRIVIGEN [Suspect]
     Active Substance: HUMAN IMMUNOGLOBULIN G
     Route: 042
     Dates: start: 20180312, end: 20180312
  4. DIPHENHYDRAMINE - 50 MG [Concomitant]
  5. ACETAMINOPHEN - 650 MG [Concomitant]
  6. PRIVIGEN [Suspect]
     Active Substance: HUMAN IMMUNOGLOBULIN G
     Route: 042
     Dates: start: 20180312, end: 20180312

REACTIONS (1)
  - Dystonia [None]

NARRATIVE: CASE EVENT DATE: 20180312
